FAERS Safety Report 5804124-3 (Version None)
Quarter: 2008Q3

REPORT INFORMATION
  Report Type: 
  Country: None (occurrence: None)
  Receive Date: 20080707
  Receipt Date: 20080620
  Transmission Date: 20090109
  Serious: Yes (Death)
  Sender: FDA-Public Use
  Company Number: 2008AL007645

PATIENT
  Age: 26 Year
  Sex: Male

DRUGS (7)
  1. DIAZEPAM [Suspect]
     Indication: DRUG USE FOR UNKNOWN INDICATION
     Dosage: PO
     Route: 048
  2. PAREGORIC LIQUID USP (ALPHARMA) (PAREGROIC LIQUID USP (ALPHARMA)) [Suspect]
     Indication: DRUG USE FOR UNKNOWN INDICATION
     Dosage: PO
     Route: 048
  3. OXYCODONE HCL [Suspect]
     Dosage: PO
     Route: 048
  4. FEVERALL [Suspect]
     Dosage: PO
     Route: 048
  5. AMPHETAMINE SULFATE [Concomitant]
  6. METHAMPHETAMINE HYDROCHLORIDE [Concomitant]
  7. COCAINE [Concomitant]

REACTIONS (2)
  - DRUG ABUSE [None]
  - DRUG TOXICITY [None]
